FAERS Safety Report 9108261 (Version 2)
Quarter: 2013Q1

REPORT INFORMATION
  Report Type: Report from Study
  Country: US (occurrence: US)
  Receive Date: 20130222
  Receipt Date: 20130306
  Transmission Date: 20140127
  Serious: Yes (Other)
  Sender: FDA-Public Use
  Company Number: US-ABBOTT-13P-163-1050454-00

PATIENT
  Age: 47 Year
  Sex: Male

DRUGS (8)
  1. HUMIRA [Suspect]
     Indication: ARTHRITIS REACTIVE
     Dates: start: 2003
  2. HUMIRA [Suspect]
  3. HUMIRA [Suspect]
  4. TYLENOL [Concomitant]
     Indication: PAIN
  5. VITAMIN B12 [Concomitant]
     Indication: VITAMIN B12 DEFICIENCY
     Route: 050
  6. LISINOPRIL [Concomitant]
     Indication: HYPERTENSION
     Dosage: 20 MG DAILY
  7. FLU SHOT [Concomitant]
     Indication: ANTIVIRAL PROPHYLAXIS
  8. UNKNOWN ANTI-PSYCHOTIC MEDICATION [Concomitant]
     Indication: PSYCHOTIC DISORDER

REACTIONS (11)
  - Ligament rupture [Recovered/Resolved]
  - Drug ineffective [Unknown]
  - Pain [Unknown]
  - Headache [Recovered/Resolved]
  - Feeling abnormal [Recovered/Resolved]
  - Arthralgia [Recovered/Resolved]
  - Pain in extremity [Recovered/Resolved]
  - Fall [Recovered/Resolved]
  - Limb injury [Recovering/Resolving]
  - Influenza [Unknown]
  - Off label use [Unknown]
